FAERS Safety Report 8151535-X (Version None)
Quarter: 2012Q1

REPORT INFORMATION
  Report Type: 
  Country: None (occurrence: None)
  Receive Date: 20120220
  Receipt Date: 20120210
  Transmission Date: 20120608
  Serious: No
  Sender: FDA-Public Use
  Company Number: JP-ROCHE-1040925

PATIENT
  Age: 12 Year
  Sex: Male
  Weight: 47 kg

DRUGS (1)
  1. TAMIFLU [Suspect]
     Indication: INFLUENZA
     Dosage: 2 CAPSULE IN EVENING AND 2 CAPSULE IN MORNING
     Route: 048
     Dates: start: 20120209

REACTIONS (2)
  - VOMITING [None]
  - OVERDOSE [None]
